FAERS Safety Report 6333474-X (Version None)
Quarter: 2009Q3

REPORT INFORMATION
  Report Type: 
  Country: None (occurrence: None)
  Receive Date: 20090828
  Receipt Date: 20090814
  Transmission Date: 20100115
  Serious: Yes (Other)
  Sender: FDA-Public Use
  Company Number: US-PFIZER INC-2009255632

PATIENT
  Sex: Female

DRUGS (1)
  1. CHANTIX [Suspect]
     Dosage: UNK
     Dates: end: 20090101

REACTIONS (12)
  - APHASIA [None]
  - BLOOD PRESSURE DECREASED [None]
  - EYE DISORDER [None]
  - GAIT DISTURBANCE [None]
  - HYPERSOMNIA [None]
  - HYPERTENSION [None]
  - HYPOAESTHESIA [None]
  - KNEE OPERATION [None]
  - MEMORY IMPAIRMENT [None]
  - MUSCLE SPASMS [None]
  - MUSCLE TWITCHING [None]
  - PARALYSIS [None]
